FAERS Safety Report 4832388-1 (Version None)
Quarter: 2005Q4

REPORT INFORMATION
  Report Type: 
  Country: None (occurrence: None)
  Receive Date: 20051117
  Receipt Date: 20051117
  Transmission Date: 20060501
  Serious: Yes (Other)
  Sender: FDA-Public Use
  Company Number: None

PATIENT
  Age: 56 Year
  Sex: Male

DRUGS (1)
  1. TEQUIN [Suspect]
     Indication: TOOTH INFECTION
     Dosage: 400MG  1 HOUR IV
     Route: 042
     Dates: start: 20050925, end: 20050925

REACTIONS (2)
  - HYPOTENSION [None]
  - INFUSION RELATED REACTION [None]
